FAERS Safety Report 6248279-8 (Version None)
Quarter: 2009Q2

REPORT INFORMATION
  Report Type: 
  Country: None (occurrence: None)
  Receive Date: 20090629
  Receipt Date: 20090616
  Transmission Date: 20091009
  Serious: Yes (Hospitalization, Other)
  Sender: FDA-Public Use
  Company Number: PHHY2009MX23944

PATIENT
  Age: 81 Year
  Sex: Male

DRUGS (4)
  1. DIOVAN HCT [Suspect]
     Indication: HYPERTENSION
     Dosage: 1 TABLET (80/12.5 MG) PER DAY
     Route: 048
     Dates: start: 20040601
  2. BI-EUGLUCON [Concomitant]
     Indication: DIABETES MELLITUS
  3. ASPIRIN [Concomitant]
     Indication: CARDIAC DISORDER
     Dosage: 1 TABLET PER DAY
  4. NORVASC [Concomitant]
     Dosage: UNK
     Dates: start: 20040601

REACTIONS (5)
  - BLADDER CANCER [None]
  - BLINDNESS [None]
  - JOINT DESTRUCTION [None]
  - SPINAL FUSION SURGERY [None]
  - SURGERY [None]
